FAERS Safety Report 9122105 (Version 1)
Quarter: 2013Q1

REPORT INFORMATION
  Report Type: Spontaneous
  Country: US (occurrence: None)
  Receive Date: 20130125
  Receipt Date: 20130125
  Transmission Date: 20140127
  Serious: No
  Sender: FDA-Public Use
  Company Number: 2012US-004439

PATIENT
  Age: 60 Year
  Sex: Female

DRUGS (2)
  1. OMONTYS (PEGINESATIDE) SOLUTION FOR INJECTION [Suspect]
     Indication: NEPHROGENIC ANAEMIA
     Route: 042
     Dates: start: 20120901, end: 20120901
  2. BENADRYL [Suspect]

REACTIONS (1)
  - Pruritus generalised [None]
